FAERS Safety Report 24646867 (Version 1)
Quarter: 2024Q4

REPORT INFORMATION
  Report Type: Spontaneous
  Country: US (occurrence: None)
  Receive Date: 20241121
  Receipt Date: 20241121
  Transmission Date: 20250115
  Serious: Yes (Death, Hospitalization)
  Sender: Public
  Company Number: None

PATIENT
  Age: 52 Year
  Sex: Female
  Weight: 69.1 kg

DRUGS (3)
  1. BINIMETINIB [Suspect]
     Active Substance: BINIMETINIB
     Dates: end: 20241025
  2. ENCORAFENIB [Suspect]
     Active Substance: ENCORAFENIB
     Dates: end: 20241025
  3. NIVOLUMAB [Suspect]
     Active Substance: NIVOLUMAB
     Dates: end: 20240930

REACTIONS (4)
  - Headache [None]
  - Dysarthria [None]
  - Metastases to meninges [None]
  - Disease progression [None]

NARRATIVE: CASE EVENT DATE: 20241118
